FAERS Safety Report 22717097 (Version 2)
Quarter: 2023Q4

REPORT INFORMATION
  Report Type: Spontaneous
  Country: US (occurrence: US)
  Receive Date: 20230718
  Receipt Date: 20231113
  Transmission Date: 20240109
  Serious: Yes (Other)
  Sender: FDA-Public Use
  Company Number: US-PFIZER INC-202300251977

PATIENT
  Age: 69 Year
  Sex: Female

DRUGS (2)
  1. PREMARIN [Suspect]
     Active Substance: ESTROGENS, CONJUGATED
     Dosage: UNK
     Route: 067
  2. ESTRADIOL [Suspect]
     Active Substance: ESTRADIOL
     Dosage: UNK (ESTRADIOL PATCH 0.025)

REACTIONS (11)
  - Chronic lymphocytic leukaemia [Unknown]
  - Urticaria [Unknown]
  - Rash papular [Unknown]
  - Agitation [Unknown]
  - Nervousness [Unknown]
  - Anxiety [Unknown]
  - Insomnia [Unknown]
  - Mood swings [Unknown]
  - Feeling abnormal [Unknown]
  - Blood oestrogen abnormal [Unknown]
  - Rash [Recovered/Resolved]
